FAERS Safety Report 21262812 (Version 1)
Quarter: 2022Q3

REPORT INFORMATION
  Report Type: Spontaneous
  Country: GB (occurrence: GB)
  Receive Date: 20220828
  Receipt Date: 20220828
  Transmission Date: 20221027
  Serious: Yes (Other)
  Sender: FDA-Public Use
  Company Number: None

PATIENT
  Age: 40 Year
  Sex: Female
  Weight: 57 kg

DRUGS (1)
  1. SERTRALINE [Suspect]
     Active Substance: SERTRALINE HYDROCHLORIDE
     Indication: Perinatal depression
     Dosage: 100MG ONCE A DAY IN MORNING
     Dates: end: 20220504

REACTIONS (2)
  - Maternal exposure during breast feeding [Unknown]
  - Shock [Recovered/Resolved]
